FAERS Safety Report 6634825-9 (Version None)
Quarter: 2010Q1

REPORT INFORMATION
  Report Type: 
  Country: None (occurrence: None)
  Receive Date: 20100315
  Receipt Date: 20100311
  Transmission Date: 20100710
  Serious: Yes (Hospitalization)
  Sender: FDA-Public Use
  Company Number: IT-MERCK-1003ITA00015

PATIENT
  Age: 89 Year
  Sex: Female

DRUGS (10)
  1. MODURETIC 5-50 [Suspect]
     Route: 048
  2. INDOBUFEN [Suspect]
     Route: 048
  3. DILTIAZEM HYDROCHLORIDE [Suspect]
     Route: 048
  4. DIGOXIN [Suspect]
     Route: 048
  5. ISOSORBIDE MONONITRATE [Concomitant]
     Route: 048
  6. FLUTICASONE PROPIONATE [Concomitant]
     Route: 055
  7. ALBUTEROL [Concomitant]
     Route: 055
  8. TIOTROPIUM BROMIDE [Concomitant]
     Route: 048
  9. AMINOPHYLLINE [Concomitant]
     Route: 065
  10. ALLOPURINOL [Concomitant]
     Route: 048

REACTIONS (7)
  - APHASIA [None]
  - ATRIOVENTRICULAR BLOCK SECOND DEGREE [None]
  - BUNDLE BRANCH BLOCK LEFT [None]
  - CEREBRAL ISCHAEMIA [None]
  - CONFUSIONAL STATE [None]
  - DISORIENTATION [None]
  - HYPERKALAEMIA [None]
